FAERS Safety Report 7392796-4 (Version None)
Quarter: 2011Q1

REPORT INFORMATION
  Report Type: 
  Country: None (occurrence: None)
  Receive Date: 20110330
  Receipt Date: 20110330
  Transmission Date: 20110831
  Serious: No
  Sender: FDA-Public Use
  Company Number: None

PATIENT
  Sex: Female
  Weight: 77.1115 kg

DRUGS (1)
  1. SYNTHROID [Suspect]
     Indication: HYPOTHYROIDISM
     Dosage: 75MG 1X PER DAY PO
     Route: 048
     Dates: start: 20051025, end: 20060315

REACTIONS (10)
  - MALAISE [None]
  - HYPOPHAGIA [None]
  - NAUSEA [None]
  - VOMITING [None]
  - PRODUCT SUBSTITUTION ISSUE [None]
  - EMOTIONAL DISORDER [None]
  - WEIGHT INCREASED [None]
  - DIARRHOEA [None]
  - DECREASED APPETITE [None]
  - DRUG HYPERSENSITIVITY [None]
